FAERS Safety Report 7668623-4 (Version None)
Quarter: 2011Q3

REPORT INFORMATION
  Report Type: 
  Country: None (occurrence: None)
  Receive Date: 20110808
  Receipt Date: 20110808
  Transmission Date: 20111222
  Serious: Yes (Death)
  Sender: FDA-Public Use
  Company Number: None

PATIENT
  Age: 33 Year
  Sex: Female
  Weight: 47.627 kg

DRUGS (1)
  1. KLONOPIN [Suspect]
     Indication: ANXIETY
     Dates: start: 20110615, end: 20110701

REACTIONS (3)
  - COMPLETED SUICIDE [None]
  - ASPHYXIA [None]
  - MIDDLE INSOMNIA [None]
